FAERS Safety Report 13400722 (Version 3)
Quarter: 2017Q3

REPORT INFORMATION
  Report Type: Spontaneous
  Country: US (occurrence: US)
  Receive Date: 20170404
  Receipt Date: 20170707
  Transmission Date: 20171127
  Serious: Yes (Death, Hospitalization)
  Sender: FDA-Public Use
  Company Number: PHEH2017US009111

PATIENT
  Sex: Male

DRUGS (4)
  1. PROGRAF [Suspect]
     Active Substance: TACROLIMUS\TACROLIMUS ANHYDROUS
     Indication: TRANSPLANT
     Dosage: 8 MG, BID
     Route: 048
     Dates: start: 201610
  2. SULFAMETHOXAZOLE AND TRIMETHOPRIM [Concomitant]
     Active Substance: SULFAMETHOXAZOLE\TRIMETHOPRIM
     Indication: PRODUCT USED FOR UNKNOWN INDICATION
     Dosage: UNK
     Route: 065
     Dates: start: 20161020
  3. MYFORTIC [Suspect]
     Active Substance: MYCOPHENOLATE SODIUM
     Indication: TRANSPLANT
     Dosage: 180 MG, BID
     Route: 048
     Dates: start: 20161101
  4. PREDNISONE. [Suspect]
     Active Substance: PREDNISONE
     Indication: TRANSPLANT
     Dosage: 10 MG, QD
     Route: 048
     Dates: start: 20161115

REACTIONS (2)
  - Chronic hepatic failure [Fatal]
  - Transplantation complication [Unknown]
